FAERS Safety Report 13230112 (Version 2)
Quarter: 2020Q3

REPORT INFORMATION
  Report Type: Report from Study
  Country: KR (occurrence: KR)
  Receive Date: 20170214
  Receipt Date: 20170313
  Transmission Date: 20201104
  Serious: Yes (Hospitalization)
  Sender: FDA-Public Use
  Company Number: KR-ROCHE-1560670

PATIENT
  Age: 61 Year
  Sex: Male
  Weight: 67.8 kg

DRUGS (31)
  1. CODAEWON FORTE [Concomitant]
     Indication: COUGH
     Route: 065
     Dates: start: 20150402, end: 20150403
  2. KALIMATE [Concomitant]
     Active Substance: CALCIUM POLYSTYRENE SULFONATE
     Indication: HYPERKALAEMIA
     Route: 065
     Dates: start: 20150309, end: 20150322
  3. GALVUS [Concomitant]
     Active Substance: VILDAGLIPTIN
     Indication: DIABETES MELLITUS
     Route: 065
     Dates: start: 20150311, end: 20150401
  4. METFORMIN [Concomitant]
     Active Substance: METFORMIN HYDROCHLORIDE
     Indication: DIABETES MELLITUS
     Route: 065
     Dates: start: 20150311, end: 20150401
  5. PENIRAMIN [Concomitant]
     Indication: RASH MACULO-PAPULAR
     Route: 065
     Dates: start: 20150407
  6. ASPIRIN. [Concomitant]
     Active Substance: ASPIRIN
     Indication: THROMBOSIS
     Route: 065
     Dates: end: 20150401
  7. DUPHALAC?EASY [Concomitant]
     Indication: CONSTIPATION
     Route: 065
     Dates: start: 20150309, end: 20150325
  8. MACPERAN [Concomitant]
     Active Substance: METOCLOPRAMIDE HYDROCHLORIDE
     Indication: NAUSEA
     Route: 065
     Dates: start: 20150404, end: 20150404
  9. LANTUS [Concomitant]
     Active Substance: INSULIN GLARGINE
     Indication: DIABETES MELLITUS
     Route: 065
     Dates: start: 20141119, end: 20150401
  10. DUPHALAC?EASY [Concomitant]
     Route: 065
     Dates: start: 20150401, end: 20150401
  11. KALIMATE [Concomitant]
     Active Substance: CALCIUM POLYSTYRENE SULFONATE
     Route: 065
     Dates: start: 20150407
  12. PENIRAMIN [Concomitant]
     Indication: PREMEDICATION
     Route: 065
     Dates: start: 20150404, end: 20150404
  13. IRCODON [Concomitant]
     Indication: CATHETER SITE PAIN
     Route: 065
     Dates: start: 20150403, end: 20150403
  14. MEGACE [Concomitant]
     Active Substance: MEGESTROL ACETATE
     Indication: DECREASED APPETITE
     Route: 065
     Dates: start: 20150404
  15. CALCIUM GLUCONATE. [Concomitant]
     Active Substance: CALCIUM GLUCONATE
     Indication: HYPERKALAEMIA
     Route: 065
     Dates: start: 20150408
  16. HUMULIN R [Concomitant]
     Active Substance: INSULIN HUMAN
     Indication: HYPERKALAEMIA
     Route: 065
     Dates: start: 20150408
  17. LANTUS [Concomitant]
     Active Substance: INSULIN GLARGINE
     Route: 065
     Dates: start: 20150403, end: 20150407
  18. ALLEGRA [Concomitant]
     Active Substance: FEXOFENADINE HYDROCHLORIDE
     Indication: COUGH
     Route: 065
     Dates: start: 20150112, end: 20150401
  19. LIPITOR [Concomitant]
     Active Substance: ATORVASTATIN CALCIUM
     Indication: HYPERCHOLESTEROLAEMIA
     Route: 065
     Dates: end: 20150401
  20. LEVOTUSS [Concomitant]
     Active Substance: LEVODROPROPIZINE
     Indication: COUGH
     Route: 065
     Dates: start: 20150112, end: 20150401
  21. SYNATURA [Concomitant]
     Indication: COUGH
     Route: 065
     Dates: start: 20150112, end: 20150401
  22. PENIRAMIN [Concomitant]
     Indication: NAUSEA
     Route: 065
     Dates: start: 20150405, end: 20150406
  23. DESOWEN [Concomitant]
     Active Substance: DESONIDE
     Indication: RASH MACULO-PAPULAR
     Route: 065
     Dates: start: 20150405
  24. MAGNESIUM OXIDE. [Concomitant]
     Active Substance: MAGNESIUM OXIDE
     Indication: CONSTIPATION
     Route: 065
     Dates: start: 20141201, end: 20150308
  25. MUTERAN [Concomitant]
     Active Substance: ACETYLCYSTEINE
     Indication: COUGH
     Route: 065
     Dates: start: 20150402, end: 20150403
  26. PLATELETS [Concomitant]
     Active Substance: HUMAN PLATELET, ALLOGENIC
     Indication: PLATELET COUNT DECREASED
     Route: 065
     Dates: start: 20150405, end: 20150406
  27. ALECTINIB. [Suspect]
     Active Substance: ALECTINIB
     Indication: NON-SMALL CELL LUNG CANCER
     Route: 048
     Dates: start: 20141118, end: 20150402
  28. TAMIFLU [Concomitant]
     Active Substance: OSELTAMIVIR PHOSPHATE
     Indication: INFLUENZA
     Route: 065
     Dates: start: 20150302, end: 20150306
  29. OLIMEL N9E [Concomitant]
     Indication: MALNUTRITION
     Route: 065
     Dates: start: 20150404, end: 20150404
  30. CORTISOLU [Concomitant]
     Active Substance: HYDROCORTISONE SODIUM SUCCINATE
     Indication: PREMEDICATION
     Route: 065
     Dates: start: 20150405, end: 20150406
  31. CALCIUM GLUCONATE. [Concomitant]
     Active Substance: CALCIUM GLUCONATE
     Indication: PREMEDICATION
     Route: 065
     Dates: start: 20150405, end: 20150406

REACTIONS (1)
  - Acute kidney injury [Recovered/Resolved]

NARRATIVE: CASE EVENT DATE: 20150331
